FAERS Safety Report 8061877-4 (Version None)
Quarter: 2012Q1

REPORT INFORMATION
  Report Type: 
  Country: None (occurrence: None)
  Receive Date: 20120123
  Receipt Date: 20120110
  Transmission Date: 20120608
  Serious: Yes (Death, Hospitalization)
  Sender: FDA-Public Use
  Company Number: US-ELI_LILLY_AND_COMPANY-US201102002110

PATIENT
  Sex: Male

DRUGS (15)
  1. TYLENOL                                 /SCH/ [Concomitant]
  2. MAGNESIUM SULFATE [Concomitant]
  3. C-VITAMIN [Concomitant]
  4. STOOL SOFTENER [Concomitant]
  5. NITROGLYCERIN [Concomitant]
  6. COQ10 [Concomitant]
  7. PREVACID [Concomitant]
  8. CALCIUM [Concomitant]
  9. ASPIRIN [Concomitant]
  10. VITAMIN D [Concomitant]
  11. FORTEO [Suspect]
     Indication: OSTEOPOROSIS
     Dosage: 20 UG, DAILY (1/D)
     Dates: start: 20110131
  12. FENTANYL [Concomitant]
     Indication: BACK PAIN
     Dosage: 25 UG, UNK
  13. FISH OIL [Concomitant]
  14. FORTEO [Suspect]
     Dosage: 20 UG, QD
  15. FENTANYL [Concomitant]
     Dosage: 50 UG, UNK

REACTIONS (16)
  - PNEUMONIA [None]
  - VISION BLURRED [None]
  - DYSPHAGIA [None]
  - DECREASED APPETITE [None]
  - COUGH [None]
  - WEIGHT DECREASED [None]
  - GASTROOESOPHAGEAL REFLUX DISEASE [None]
  - HIATUS HERNIA [None]
  - INJECTION SITE PAIN [None]
  - CEREBROVASCULAR ACCIDENT [None]
  - HYPERHIDROSIS [None]
  - POLYMEDICATION [None]
  - AGEUSIA [None]
  - DIZZINESS [None]
  - BACK PAIN [None]
  - NAUSEA [None]
